FAERS Safety Report 8289588-0 (Version None)
Quarter: 2012Q2

REPORT INFORMATION
  Report Type: 
  Country: None (occurrence: None)
  Receive Date: 20120417
  Receipt Date: 20120409
  Transmission Date: 20120825
  Serious: Yes (Hospitalization)
  Sender: FDA-Public Use
  Company Number: US-BAYER-2011-124600

PATIENT
  Age: 35 Year
  Sex: Female

DRUGS (6)
  1. YASMIN [Suspect]
     Dosage: UNK
     Route: 048
     Dates: start: 20050809, end: 20061101
  2. COLACE [Concomitant]
  3. PROTONIX [Concomitant]
     Dosage: 40 MG, QD
     Route: 048
     Dates: start: 20090908
  4. VITAMIN E [Concomitant]
     Dosage: UNK UNK, QD
     Dates: start: 20061115
  5. FOLIC ACID [Concomitant]
     Dosage: UNK UNK, QD
     Dates: start: 20061115
  6. MAGNESIUM [Concomitant]
     Dosage: UNK UNK, QD
     Dates: start: 20061115

REACTIONS (2)
  - PULMONARY EMBOLISM [None]
  - DEEP VEIN THROMBOSIS [None]
